FAERS Safety Report 7768084-0 (Version None)
Quarter: 2011Q3

REPORT INFORMATION
  Report Type: 
  Country: None (occurrence: None)
  Receive Date: 20110922
  Receipt Date: 20110920
  Transmission Date: 20111222
  Serious: Yes (Other)
  Sender: FDA-Public Use
  Company Number: US-PFIZER INC-2011178078

PATIENT
  Age: 66 Year
  Sex: Female
  Weight: 86 kg

DRUGS (8)
  1. VERAPAMIL HCL [Suspect]
     Indication: HYPERTENSION
  2. CORTISONE ACETATE [Suspect]
     Indication: PALPITATIONS
     Dosage: 180 MG, UNK
  3. LEVOXYL [Concomitant]
     Indication: HYPERTHYROIDISM
     Dosage: 0.05 MG, UNK
     Route: 048
  4. CALAN [Suspect]
     Indication: HYPERTENSION
     Dosage: 240 MG, UNK
  5. VERAPAMIL HCL [Suspect]
     Indication: PALPITATIONS
     Dosage: UNK
  6. ARIMIDEX [Suspect]
     Indication: BREAST CANCER
     Dosage: UNK
     Route: 048
  7. CALAN [Suspect]
     Indication: PALPITATIONS
     Dosage: 120 MG, UNK
     Dates: start: 20060101
  8. CORTISONE ACETATE [Suspect]
     Indication: HYPERTENSION
     Dosage: UNK

REACTIONS (3)
  - BREAST CANCER [None]
  - VENTRICULAR EXTRASYSTOLES [None]
  - DRUG INEFFECTIVE [None]
